FAERS Safety Report 6214812-5 (Version None)
Quarter: 2009Q2

REPORT INFORMATION
  Report Type: 
  Country: None (occurrence: None)
  Receive Date: 20090604
  Receipt Date: 20090527
  Transmission Date: 20091009
  Serious: Yes (Hospitalization)
  Sender: FDA-Public Use
  Company Number: Z0000782A

PATIENT
  Sex: Male
  Weight: 93.3 kg

DRUGS (20)
  1. OFATUMUMAB [Suspect]
     Route: 042
     Dates: start: 20090223
  2. CHLORAMBUCIL [Suspect]
     Route: 048
     Dates: start: 20090224
  3. WARFARIN [Concomitant]
     Indication: ATRIAL FIBRILLATION
     Dosage: 9MG PER DAY
     Route: 048
     Dates: end: 20090405
  4. DIGOXIN [Concomitant]
     Indication: ATRIAL FIBRILLATION
     Dosage: .25MG PER DAY
     Route: 048
  5. PANTOPRAZOLE SODIUM [Concomitant]
     Indication: PROPHYLAXIS
     Dosage: 40MG PER DAY
     Route: 048
     Dates: start: 20071201
  6. TRITACE [Concomitant]
     Indication: CEREBROVASCULAR ACCIDENT PROPHYLAXIS
     Dosage: 5MG PER DAY
     Route: 048
     Dates: start: 20070101
  7. BUMEX [Concomitant]
     Indication: ATRIAL FIBRILLATION
     Dosage: 1MG PER DAY
     Route: 048
     Dates: start: 20071101, end: 20090403
  8. ALLOPURINOL [Concomitant]
     Dosage: 300MG PER DAY
     Route: 048
     Dates: start: 20090106
  9. SYMBICORT [Concomitant]
     Indication: ASTHMA
     Dosage: 1PUFF EVERY 4 DAYS
     Route: 048
  10. WARFARIN [Concomitant]
     Dosage: 8MG PER DAY
     Route: 048
     Dates: start: 20090323, end: 20090323
  11. WARFARIN [Concomitant]
     Dosage: 9MG PER DAY
     Route: 048
     Dates: start: 20090324, end: 20090325
  12. WARFARIN [Concomitant]
     Dosage: 9MG PER DAY
     Route: 048
     Dates: start: 20090328, end: 20090405
  13. WARFARIN [Concomitant]
     Dosage: 8MG PER DAY
     Route: 048
     Dates: start: 20090329, end: 20090401
  14. WARFARIN [Concomitant]
     Dosage: 7MG PER DAY
     Route: 048
     Dates: start: 20090407, end: 20090407
  15. WARFARIN [Concomitant]
     Dosage: 8MG PER DAY
     Route: 048
     Dates: start: 20090306, end: 20090306
  16. WARFARIN [Concomitant]
     Dosage: 6MG PER DAY
     Route: 048
     Dates: start: 20090408, end: 20090408
  17. BUMEX [Concomitant]
     Dosage: 1MG TWICE PER DAY
     Route: 048
     Dates: start: 20090403, end: 20090414
  18. TRITACE [Concomitant]
     Indication: HYPERTENSION
     Dosage: 7.5MG PER DAY
     Route: 048
     Dates: start: 20090408
  19. WARFARIN [Concomitant]
     Dosage: 10MG PER DAY
     Route: 048
     Dates: start: 20090326, end: 20090327
  20. BUMEX [Concomitant]
     Indication: HYPERTENSION
     Dosage: 1MG PER DAY
     Route: 048
     Dates: start: 20090414

REACTIONS (1)
  - RESPIRATORY TRACT INFECTION [None]
